FAERS Safety Report 19107056 (Version 1)
Quarter: 2021Q2

REPORT INFORMATION
  Report Type: Spontaneous
  Country: GB (occurrence: GB)
  Receive Date: 20210408
  Receipt Date: 20210408
  Transmission Date: 20210717
  Serious: Yes (Hospitalization)
  Sender: FDA-Public Use
  Company Number: GB-LEADINGPHARMA-GB-2021LEALIT00123

PATIENT
  Age: 21 Year
  Sex: Female

DRUGS (2)
  1. FUROSEMIDE TABLETS USP [Suspect]
     Active Substance: FUROSEMIDE
     Indication: POLYURIA
     Route: 065
  2. PAMIDRONIC ACID [Interacting]
     Active Substance: PAMIDRONIC ACID
     Indication: RENAL DISORDER
     Route: 042

REACTIONS (1)
  - Drug ineffective [Unknown]
